FAERS Safety Report 5724848-6 (Version None)
Quarter: 2008Q2

REPORT INFORMATION
  Report Type: 
  Country: None (occurrence: None)
  Receive Date: 20080501
  Receipt Date: 20080417
  Transmission Date: 20081010
  Serious: Yes (Other)
  Sender: FDA-Public Use
  Company Number: CA-BAYER-200711953GDS

PATIENT
  Age: 25 Year
  Sex: Female

DRUGS (2)
  1. ACETAMINOPHEN [Suspect]
     Indication: SUICIDE ATTEMPT
     Route: 065
     Dates: start: 20051006
  2. ASPIRIN [Suspect]
     Indication: SUICIDE ATTEMPT
     Dosage: TOTAL DAILY DOSE: 48750 MG  UNIT DOSE: 325 MG
     Route: 065
     Dates: start: 20051006

REACTIONS (4)
  - ALKALOSIS [None]
  - DRUG LEVEL INCREASED [None]
  - TACHYPNOEA [None]
  - TINNITUS [None]
